FAERS Safety Report 24389617 (Version 1)
Quarter: 2024Q4

REPORT INFORMATION
  Report Type: Spontaneous
  Country: FR (occurrence: FR)
  Receive Date: 20241003
  Receipt Date: 20241003
  Transmission Date: 20250114
  Serious: Yes (Death)
  Sender: RANBAXY
  Company Number: FR-AFSSAPS-LY2023001576

PATIENT
  Sex: Female

DRUGS (1)
  1. METFORMIN [Suspect]
     Active Substance: METFORMIN HYDROCHLORIDE
     Indication: Diabetes mellitus
     Dosage: 850 MILLIGRAM, UNK
     Route: 048
     Dates: end: 20230904

REACTIONS (2)
  - Lactic acidosis [Fatal]
  - Deprescribing error [Fatal]

NARRATIVE: CASE EVENT DATE: 20230901
